FAERS Safety Report 16111639 (Version 1)
Quarter: 2019Q1

REPORT INFORMATION
  Report Type: Spontaneous
  Country: BR (occurrence: BR)
  Receive Date: 20190325
  Receipt Date: 20190325
  Transmission Date: 20190418
  Serious: Yes (Other)
  Sender: FDA-Public Use
  Company Number: BR-BAYER-2019-054091

PATIENT
  Sex: Male

DRUGS (1)
  1. ASPIRINA PREVENT 100 MG [Suspect]
     Active Substance: ASPIRIN

REACTIONS (1)
  - Dengue fever [None]
